FAERS Safety Report 9507444 (Version 1)
Quarter: 2013Q3

REPORT INFORMATION
  Report Type: Spontaneous
  Country: US (occurrence: None)
  Receive Date: 20130906
  Receipt Date: 20130906
  Transmission Date: 20140515
  Serious: Yes (Other)
  Sender: FDA-Public Use
  Company Number: None

PATIENT
  Age: 72 Year
  Sex: Male
  Weight: 92.99 kg

DRUGS (6)
  1. ANDRODERM [Suspect]
     Indication: BLOOD TESTOSTERONE DECREASED
     Dosage: STRENGTH:  2MG?QUANTITY:  60 PER BOX?FREQUENCY: ONE PATCH APPLIED AT BEDTIME ?HOW:  ON THE SKIN?EXPIRATION DATE: 07/02/2014?LOT NUMBER: 628594 W/EXP DATE OF 11/20/2014 ON PKG?FIRST THERAPY DATE: AUG 1?
     Dates: end: 20130904
  2. LISINOPRIL [Concomitant]
  3. VITORIN [Concomitant]
  4. 81MG ASPIRIN [Concomitant]
  5. ALEVE [Concomitant]
  6. VITAMINS [Concomitant]

REACTIONS (1)
  - Application site rash [None]
